FAERS Safety Report 9211174 (Version 2)
Quarter: 2013Q4

REPORT INFORMATION
  Report Type: Spontaneous
  Country: GB (occurrence: GB)
  Receive Date: 20130404
  Receipt Date: 20131015
  Transmission Date: 20140711
  Serious: Yes (Death, Other)
  Sender: FDA-Public Use
  Company Number: GB-ACTAVIS-2013-05998

PATIENT
  Age: 71 Year
  Sex: Female
  Weight: 57 kg

DRUGS (5)
  1. IRINOTECAN (UNKNOWN) [Suspect]
     Indication: COLON CANCER METASTATIC
     Dosage: 320 MG, UNKNOWN
     Route: 042
     Dates: start: 20130213, end: 20130213
  2. AVASTIN /01555201/ [Suspect]
     Indication: COLON CANCER METASTATIC
     Dosage: 425 MG, UNKNOWN
     Route: 042
     Dates: start: 20130213, end: 20130213
  3. XELODA [Suspect]
     Indication: COLON CANCER METASTATIC
     Dosage: 1300 MG, BID
     Route: 048
     Dates: start: 20130213, end: 20130221
  4. ORAMORPH [Concomitant]
     Indication: PRODUCT USED FOR UNKNOWN INDICATION
     Dosage: UNK
     Route: 065
  5. LANSOPRAZOLE [Concomitant]
     Indication: PRODUCT USED FOR UNKNOWN INDICATION
     Dosage: UNK
     Route: 065

REACTIONS (2)
  - Pulmonary embolism [Fatal]
  - Myocardial ischaemia [Not Recovered/Not Resolved]
